FAERS Safety Report 5927466-X (Version None)
Quarter: 2008Q4

REPORT INFORMATION
  Report Type: 
  Country: None (occurrence: None)
  Receive Date: 20081021
  Receipt Date: 20081021
  Transmission Date: 20090506
  Serious: Yes (Hospitalization)
  Sender: FDA-Public Use
  Company Number: None

PATIENT
  Sex: Female
  Weight: 63.9572 kg

DRUGS (4)
  1. ABRAXANE [Suspect]
     Indication: DISEASE PROGRESSION
     Dosage: 260 MG/M2 ONCE EVERY 21 DAYS IV
     Route: 042
     Dates: start: 20080630, end: 20080922
  2. ABRAXANE [Suspect]
     Indication: DISEASE RECURRENCE
     Dosage: 260 MG/M2 ONCE EVERY 21 DAYS IV
     Route: 042
     Dates: start: 20080630, end: 20080922
  3. VANDETANIB [Suspect]
     Indication: DISEASE PROGRESSION
     Dosage: 100 MG DAILY PO
     Route: 048
     Dates: start: 20080630, end: 20081010
  4. VANDETANIB [Suspect]
     Indication: DISEASE RECURRENCE
     Dosage: 100 MG DAILY PO
     Route: 048
     Dates: start: 20080630, end: 20081010

REACTIONS (5)
  - ANAEMIA [None]
  - NEOPLASM PROGRESSION [None]
  - PAIN [None]
  - VAGINAL HAEMORRHAGE [None]
  - VAGINAL NEOPLASM [None]
